FAERS Safety Report 23654029 (Version 1)
Quarter: 2024Q1

REPORT INFORMATION
  Report Type: Spontaneous
  Country: US (occurrence: None)
  Receive Date: 20240319
  Receipt Date: 20240319
  Transmission Date: 20240409
  Serious: Yes (Other)
  Sender: FDA-Public Use
  Company Number: None

PATIENT
  Age: 27 Year
  Sex: Female
  Weight: 73.2 kg

DRUGS (7)
  1. INFED [Suspect]
     Active Substance: IRON DEXTRAN
     Indication: Anaemia of pregnancy
     Dosage: OTHER FREQUENCY : ONCE;?
     Route: 041
  2. 0.9%  NaCl infusion [Concomitant]
     Dates: start: 20240319, end: 20240319
  3. docusate sodium (COLACE) 100 MG capsule [Concomitant]
     Dates: start: 20231207
  4. hydrOXYzine (ATARAX) 50 MG tablet [Concomitant]
     Dates: start: 20240313
  5. ondansetron (ZOFRAN-ODT) 8 MG disintegrating tablet [Concomitant]
     Dates: start: 20231207
  6. Prenatal MV + Min w/FA-DHA (PRENATAL GUMMIES) [Concomitant]
  7. risperidone (RISPERDAL) 1 MG tablet [Concomitant]
     Dates: start: 20240318

REACTIONS (5)
  - Flushing [None]
  - Chest discomfort [None]
  - Infusion related reaction [None]
  - Exposure during pregnancy [None]
  - Refusal of treatment by patient [None]

NARRATIVE: CASE EVENT DATE: 20240319
